FAERS Safety Report 7360034-4 (Version None)
Quarter: 2011Q1

REPORT INFORMATION
  Report Type: 
  Country: None (occurrence: None)
  Receive Date: 20110317
  Receipt Date: 20110307
  Transmission Date: 20110831
  Serious: Yes (Death, Hospitalization, Other)
  Sender: FDA-Public Use
  Company Number: BE-BAYER-2011-020802

PATIENT
  Age: 60 Year
  Sex: Female

DRUGS (6)
  1. KEPPRA [Concomitant]
     Indication: EPILEPSY
  2. KEPPRA [Concomitant]
     Dosage: HALF DOSE NOS
  3. AVELOX [Suspect]
     Indication: BRONCHITIS
     Dosage: 400 MG, QD
     Route: 048
  4. CETIRIZINE [Concomitant]
  5. DURAGESIC-100 [Concomitant]
     Indication: BONE PAIN
  6. MS DIRECT [Concomitant]
     Indication: BONE PAIN

REACTIONS (6)
  - HEPATITIS ACUTE [None]
  - CONFUSIONAL STATE [None]
  - ENCEPHALOPATHY [None]
  - HEPATITIS TOXIC [None]
  - HEPATIC FAILURE [None]
  - GRAND MAL CONVULSION [None]
